FAERS Safety Report 9061579 (Version 1)
Quarter: 2013Q1

REPORT INFORMATION
  Report Type: Spontaneous
  Country: US (occurrence: None)
  Receive Date: 20130208
  Receipt Date: 20130208
  Transmission Date: 20140127
  Serious: Yes (Other)
  Sender: FDA-Public Use
  Company Number: None

PATIENT
  Age: 82 Year
  Sex: Female
  Weight: 51 kg

DRUGS (15)
  1. ENOXAPARIN [Suspect]
     Indication: ANTICOAGULANT THERAPY
     Route: 058
     Dates: start: 20120328, end: 20120403
  2. ENOXAPARIN [Suspect]
     Indication: ATRIAL FIBRILLATION
     Route: 058
     Dates: start: 20120328, end: 20120403
  3. ENOXAPARIN [Suspect]
     Indication: ATRIAL FLUTTER
     Route: 058
     Dates: start: 20120328, end: 20120403
  4. DIGOXIN [Concomitant]
  5. DONEPEZIL [Concomitant]
  6. ISOSORBIDE MONONITRATE [Concomitant]
  7. ATORVASTATIN [Concomitant]
  8. METHOTREXATE [Concomitant]
  9. ESOMEPRAZOLE [Concomitant]
  10. OXYBUTYNIN XL [Concomitant]
  11. METOPROLOL XL [Concomitant]
  12. SENNA S [Concomitant]
  13. ASPIRIN [Concomitant]
  14. FOLIC ACID [Concomitant]
  15. PHENYTOIN [Concomitant]

REACTIONS (4)
  - Pelvic haematoma [None]
  - Abdominal wall haematoma [None]
  - Constipation [None]
  - Urinary tract infection [None]
